FAERS Safety Report 17084922 (Version 1)
Quarter: 2019Q4

REPORT INFORMATION
  Report Type: Spontaneous
  Country: US (occurrence: US)
  Receive Date: 20191127
  Receipt Date: 20191127
  Transmission Date: 20200122
  Serious: Yes (Other)
  Sender: FDA-Public Use
  Company Number: US-TEVA-2019-US-1141989

PATIENT
  Age: 75 Year
  Sex: Female

DRUGS (1)
  1. METOPROLOL SUCCINATE. [Suspect]
     Active Substance: METOPROLOL SUCCINATE
     Indication: ATRIAL FIBRILLATION
     Dosage: DOSE STRENGTH:  25
     Dates: start: 20191118

REACTIONS (7)
  - Feeding disorder [Unknown]
  - Product substitution issue [Unknown]
  - Atrial fibrillation [Unknown]
  - Throat irritation [Unknown]
  - Dyspepsia [Unknown]
  - Sleep disorder [Unknown]
  - Abdominal discomfort [Unknown]

NARRATIVE: CASE EVENT DATE: 201911
